FAERS Safety Report 8559837-X (Version None)
Quarter: 2012Q3

REPORT INFORMATION
  Report Type: 
  Country: None (occurrence: None)
  Receive Date: 20120727
  Receipt Date: 20120727
  Transmission Date: 20120928
  Serious: No
  Sender: FDA-Public Use
  Company Number: None

PATIENT
  Age: 80 Year
  Sex: Female

DRUGS (1)
  1. EPOETIN ALFA,RECOMBINANT [Suspect]
     Indication: ANAEMIA
     Dosage: 10000 UNITS OTHER SQ
     Route: 058
     Dates: start: 20120523, end: 20120523

REACTIONS (5)
  - MUSCLE SPASMS [None]
  - PRURITUS GENERALISED [None]
  - WHEEZING [None]
  - URTICARIA [None]
  - DRUG HYPERSENSITIVITY [None]
